FAERS Safety Report 5299956-7 (Version None)
Quarter: 2007Q2

REPORT INFORMATION
  Report Type: 
  Country: None (occurrence: None)
  Receive Date: 20070417
  Receipt Date: 20070326
  Transmission Date: 20071010
  Serious: Yes (Other)
  Sender: FDA-Public Use
  Company Number: US-PFIZER INC-2007025357

PATIENT
  Sex: Female
  Weight: 79.4 kg

DRUGS (16)
  1. CHANTIX [Suspect]
     Indication: SMOKING CESSATION THERAPY
     Dates: start: 20070307, end: 20070316
  2. TOPAMAX [Interacting]
  3. PROVIGIL [Interacting]
  4. CITALOPRAM HYDROBROMIDE [Interacting]
  5. OXYCODONE HCL [Concomitant]
  6. REQUIP [Concomitant]
  7. NORFLEX [Concomitant]
  8. TOPROL-XL [Concomitant]
  9. VYTORIN [Concomitant]
  10. NEXIUM [Concomitant]
  11. DETROL [Concomitant]
  12. ESTRADIOL [Concomitant]
  13. SUCRALFATE [Concomitant]
  14. ASPIRIN [Concomitant]
  15. CELEBREX [Concomitant]
  16. LIDOCAINE [Concomitant]
     Route: 062

REACTIONS (3)
  - ACTIVITIES OF DAILY LIVING IMPAIRED [None]
  - DRUG INTERACTION [None]
  - SEDATION [None]
